FAERS Safety Report 15366081 (Version 1)
Quarter: 2018Q3

REPORT INFORMATION
  Report Type: Report from Study
  Country: BR (occurrence: BR)
  Receive Date: 20180910
  Receipt Date: 20180910
  Transmission Date: 20181010
  Serious: Yes (Life-Threatening, Hospitalization, Other)
  Sender: FDA-Public Use
  Company Number: PHHY2018BR089387

PATIENT
  Age: 82 Year
  Sex: Female

DRUGS (1)
  1. DIOVAN HCT [Suspect]
     Active Substance: HYDROCHLOROTHIAZIDE\VALSARTAN
     Indication: PRODUCT USED FOR UNKNOWN INDICATION
     Dosage: (HYDROCHLOROTHIAZIDE 25 MG, VALSARTAN 320 MG)
     Route: 065

REACTIONS (8)
  - Pain [Unknown]
  - Hypertension [Recovering/Resolving]
  - Aneurysm [Unknown]
  - Psoriasis [Not Recovered/Not Resolved]
  - Drug dependence [Recovering/Resolving]
  - Aneurysm [Recovered/Resolved]
  - Depression [Recovering/Resolving]
  - Panic disorder [Not Recovered/Not Resolved]

NARRATIVE: CASE EVENT DATE: 2015
